FAERS Safety Report 9460210 (Version 1)
Quarter: 2013Q3

REPORT INFORMATION
  Report Type: Spontaneous
  Country: US (occurrence: US)
  Receive Date: 20130815
  Receipt Date: 20130815
  Transmission Date: 20140515
  Serious: No
  Sender: FDA-Public Use
  Company Number: US-PFIZER INC-2013236350

PATIENT
  Age: 62 Year
  Sex: Female
  Weight: 77.1 kg

DRUGS (3)
  1. LYRICA [Suspect]
     Indication: NEUROPATHY PERIPHERAL
     Dosage: 75 MG, 2X/DAY
     Route: 048
     Dates: start: 201306, end: 20130809
  2. LYRICA [Suspect]
     Dosage: 150 MG, 2X/DAY
     Route: 048
     Dates: start: 20130809
  3. SYNTHROID [Concomitant]
     Dosage: UNK

REACTIONS (6)
  - Off label use [Unknown]
  - Hypoaesthesia [Unknown]
  - Feeling drunk [Unknown]
  - Feeling abnormal [Unknown]
  - Dizziness [Unknown]
  - Gait disturbance [Unknown]
